FAERS Safety Report 12637127 (Version 1)
Quarter: 2016Q3

REPORT INFORMATION
  Report Type: Spontaneous
  Country: US (occurrence: US)
  Receive Date: 20160809
  Receipt Date: 20160809
  Transmission Date: 20161109
  Serious: No
  Sender: FDA-Public Use
  Company Number: US-BEH-2015053118

PATIENT
  Sex: Female
  Weight: 109.8 kg

DRUGS (11)
  1. LOSARTAN HYDROCHLOROTHIAZIDE [Concomitant]
     Active Substance: HYDROCHLOROTHIAZIDE\LOSARTAN POTASSIUM
  2. PRIVIGEN [Suspect]
     Active Substance: HUMAN IMMUNOGLOBULIN G
     Route: 042
  3. ESTROGENS [Concomitant]
     Active Substance: ESTROGENS
  4. PRIVIGEN [Suspect]
     Active Substance: HUMAN IMMUNOGLOBULIN G
     Indication: IMMUNODEFICIENCY COMMON VARIABLE
     Route: 042
  5. MENEST [Concomitant]
     Active Substance: ESTROGENS, ESTERIFIED
  6. ACETAMINOPHEN. [Concomitant]
     Active Substance: ACETAMINOPHEN
  7. ATORVASTATIN [Concomitant]
     Active Substance: ATORVASTATIN
  8. MELOXICAM. [Concomitant]
     Active Substance: MELOXICAM
  9. AZOR [Concomitant]
     Active Substance: AMLODIPINE BESYLATE\OLMESARTAN MEDOXOMIL
  10. LASIX [Concomitant]
     Active Substance: FUROSEMIDE
  11. LISINOPRIL. [Concomitant]
     Active Substance: LISINOPRIL

REACTIONS (1)
  - Cystitis [Unknown]
